FAERS Safety Report 6673922-9 (Version None)
Quarter: 2010Q2

REPORT INFORMATION
  Report Type: 
  Country: None (occurrence: None)
  Receive Date: 20100409
  Receipt Date: 20100323
  Transmission Date: 20101027
  Serious: No
  Sender: FDA-Public Use
  Company Number: US-BIOGENIDEC-2010BI010330

PATIENT
  Age: 53 Year
  Sex: Male

DRUGS (13)
  1. TYSABRI [Suspect]
     Indication: MULTIPLE SCLEROSIS
     Dates: start: 20080513
  2. METFORMIN [Concomitant]
  3. BACLOFEN [Concomitant]
  4. SIMVASTATIN [Concomitant]
  5. LOSARTAN POTASSIUM [Concomitant]
  6. METOPROLOL TARTRATE [Concomitant]
  7. GEMFIBROZIL [Concomitant]
  8. PLAVIX [Concomitant]
  9. HYDROCHLOROTHIAZIDE [Concomitant]
  10. ASPIRIN [Concomitant]
  11. AMLODIPINE [Concomitant]
  12. ELAVIL [Concomitant]
  13. GLYBURIDE [Concomitant]

REACTIONS (2)
  - ROTATOR CUFF SYNDROME [None]
  - URINARY TRACT INFECTION [None]
